FAERS Safety Report 8541774-8 (Version None)
Quarter: 2012Q3

REPORT INFORMATION
  Report Type: 
  Country: None (occurrence: None)
  Receive Date: 20120726
  Receipt Date: 20110901
  Transmission Date: 20120928
  Serious: No
  Sender: FDA-Public Use
  Company Number: US-ASTRAZENECA-2011SE53068

PATIENT
  Sex: Female

DRUGS (9)
  1. SEROQUEL [Suspect]
     Indication: BIPOLAR DISORDER
     Route: 048
  2. ZOLOFT [Concomitant]
     Indication: BIPOLAR DISORDER
  3. DEPAKOTE [Concomitant]
     Indication: BIPOLAR DISORDER
  4. LEXAPRO [Concomitant]
     Indication: BIPOLAR DISORDER
  5. LITHIUM CARBONATE [Concomitant]
     Indication: BIPOLAR DISORDER
  6. ZYPREXA [Concomitant]
     Indication: BIPOLAR DISORDER
  7. SEROQUEL [Suspect]
     Route: 048
  8. TRAZODONE HCL [Concomitant]
     Indication: BIPOLAR DISORDER
  9. VISTARIL [Concomitant]
     Indication: BIPOLAR DISORDER

REACTIONS (1)
  - DRUG INEFFECTIVE [None]
